FAERS Safety Report 9712223 (Version 1)
Quarter: 2013Q4

REPORT INFORMATION
  Report Type: Spontaneous
  Country: US (occurrence: US)
  Receive Date: 20131126
  Receipt Date: 20131126
  Transmission Date: 20140711
  Serious: No
  Sender: FDA-Public Use
  Company Number: US-BRISTOL-MYERS SQUIBB COMPANY-19148949

PATIENT
  Age: 61 Year
  Sex: Male
  Weight: 81.63 kg

DRUGS (2)
  1. BYDUREON [Suspect]
     Indication: TYPE 2 DIABETES MELLITUS
     Dosage: NO OF INJECTIONS:2
     Route: 058
  2. LANTUS [Suspect]

REACTIONS (1)
  - Blood glucose increased [Unknown]
